FAERS Safety Report 5112459-5 (Version None)
Quarter: 2006Q3

REPORT INFORMATION
  Report Type: 
  Country: None (occurrence: None)
  Receive Date: 20060922
  Receipt Date: 20060817
  Transmission Date: 20061208
  Serious: Yes (Hospitalization, Disabling)
  Sender: FDA-Public Use
  Company Number: 2006UW16448

PATIENT
  Age: 66 Year
  Sex: Female
  Weight: 67.7 kg

DRUGS (7)
  1. CRESTOR [Suspect]
     Indication: HYPERLIPIDAEMIA
     Route: 048
     Dates: start: 20050519, end: 20060620
  2. INH [Suspect]
     Indication: RHEUMATOID ARTHRITIS
     Dates: start: 20050901
  3. SYNTHROID [Concomitant]
     Indication: GOITRE
     Dates: start: 19910101
  4. TENORETIC 100 [Concomitant]
     Dosage: 50/12.5
     Route: 048
     Dates: start: 20030429
  5. EFFEXOR [Concomitant]
     Indication: AUTONOMIC NERVOUS SYSTEM IMBALANCE
     Route: 048
     Dates: start: 20030403
  6. MOBIC [Concomitant]
  7. VITAMIN [Concomitant]

REACTIONS (6)
  - ARTHRALGIA [None]
  - HEPATIC ENZYME INCREASED [None]
  - HYPERSENSITIVITY [None]
  - MUSCULOSKELETAL PAIN [None]
  - PAIN IN EXTREMITY [None]
  - RHEUMATOID ARTHRITIS [None]
